FAERS Safety Report 5619452-4 (Version None)
Quarter: 2008Q1

REPORT INFORMATION
  Report Type: 
  Country: None (occurrence: None)
  Receive Date: 20080109
  Receipt Date: 20070717
  Transmission Date: 20080703
  Serious: Yes (Other)
  Sender: FDA-Public Use
  Company Number: WAES 0707USA03060

PATIENT
  Age: 69 Year
  Sex: Female
  Weight: 75.7507 kg

DRUGS (9)
  1. ZETIA [Suspect]
     Indication: HYPERLIPIDAEMIA
     Dosage: 10 MG/DAILY/PO
     Route: 048
     Dates: start: 20061107, end: 20070613
  2. PRAVASTATIN [Suspect]
     Indication: DEPRESSION
     Dosage: 40 MG/DAILY/PO
     Route: 048
     Dates: start: 20060823, end: 20070613
  3. PRAVASTATIN [Suspect]
     Indication: HYPERLIPIDAEMIA
     Dosage: 40 MG/DAILY/PO
     Route: 048
     Dates: start: 20060823, end: 20070613
  4. MACROBID [Suspect]
     Indication: URINARY TRACT INFECTION
     Dosage: 100 MG/BID/PO
     Route: 048
  5. EFFEXOR XR [Concomitant]
  6. K-DUR [Concomitant]
  7. MAXZIDE [Concomitant]
  8. FLAXSEED [Concomitant]
  9. OMEPRAZOLE [Concomitant]

REACTIONS (3)
  - ALANINE AMINOTRANSFERASE INCREASED [None]
  - ASPARTATE AMINOTRANSFERASE INCREASED [None]
  - URINARY TRACT INFECTION [None]
